FAERS Safety Report 19095402 (Version 2)
Quarter: 2022Q2

REPORT INFORMATION
  Report Type: Report from Study
  Country: US (occurrence: None)
  Receive Date: 20210406
  Receipt Date: 20220513
  Transmission Date: 20220721
  Serious: Yes (Hospitalization)
  Sender: FDA-Public Use
  Company Number: US-ROCHE-2799174

PATIENT
  Age: 59 Year
  Sex: Male
  Weight: 82.3 kg

DRUGS (4)
  1. ATEZOLIZUMAB [Suspect]
     Active Substance: ATEZOLIZUMAB
     Indication: Adenocarcinoma of colon
     Dosage: LAST DOSE DATE: 10/OCT/2018, 840 MG
     Route: 042
     Dates: start: 20180523
  2. FLUOROURACIL [Suspect]
     Active Substance: FLUOROURACIL
     Indication: Adenocarcinoma of colon
     Dosage: ON DAY 1 FOLLOWED BY 2400MG/M2 IV OVER 46 HOURS DAYS 1-3?LAST DOSE DATE: 12/OCT/2018, 5630 MG
     Route: 040
     Dates: start: 20181010
  3. LEUCOVORIN CALCIUM [Suspect]
     Active Substance: LEUCOVORIN CALCIUM
     Indication: Adenocarcinoma of colon
     Dosage: OVER 2 HOURS ON DAY 1?LAST DOSE DATE: 10/OCT/2018, 800 MG
     Route: 042
     Dates: start: 20181010
  4. OXALIPLATIN [Suspect]
     Active Substance: OXALIPLATIN
     Indication: Adenocarcinoma of colon
     Dosage: OVER 2 HOURS ON DAY 1?LAST DOSE DATE: 10/OCT/2018, 171 MG
     Route: 042
     Dates: start: 20181010

REACTIONS (2)
  - Acute kidney injury [Recovered/Resolved with Sequelae]
  - Dehydration [Recovered/Resolved with Sequelae]

NARRATIVE: CASE EVENT DATE: 20181020
